FAERS Safety Report 5645144-1 (Version None)
Quarter: 2008Q1

REPORT INFORMATION
  Report Type: 
  Country: None (occurrence: None)
  Receive Date: 20080229
  Receipt Date: 20080226
  Transmission Date: 20080703
  Serious: Yes (Life-Threatening)
  Sender: FDA-Public Use
  Company Number: JP-ASTRAZENECA-2008AP01415

PATIENT
  Age: 38 Year
  Sex: Male
  Weight: 130 kg

DRUGS (1)
  1. DIPRIVAN [Suspect]
     Indication: SEDATION
     Dosage: UNKNOWN DOSE
     Route: 042
     Dates: start: 20080201

REACTIONS (1)
  - ALTERED STATE OF CONSCIOUSNESS [None]
